FAERS Safety Report 5068412-3 (Version None)
Quarter: 2006Q3

REPORT INFORMATION
  Report Type: 
  Country: None (occurrence: None)
  Receive Date: 20060802
  Receipt Date: 20050915
  Transmission Date: 20061208
  Serious: No
  Sender: FDA-Public Use
  Company Number: US-BRISTOL-MYERS SQUIBB COMPANY-13111679

PATIENT
  Age: 68 Year
  Sex: Male
  Weight: 70 kg

DRUGS (8)
  1. COUMADIN [Suspect]
     Indication: MYOCARDIAL INFARCTION
     Dates: start: 19900101
  2. COUMADIN [Suspect]
     Indication: VASCULAR BYPASS GRAFT
     Dates: start: 19900101
  3. ASPIRIN [Concomitant]
  4. ATENOLOL [Concomitant]
  5. JANTOVEN [Concomitant]
  6. LIPITOR [Concomitant]
     Dosage: AT BEDTIME
  7. LIPITOR [Concomitant]
     Dosage: TAKEN AT HOUR OF SLEEP
  8. ZETIA [Concomitant]

REACTIONS (1)
  - INTERNATIONAL NORMALISED RATIO DECREASED [None]
